FAERS Safety Report 6307890-6 (Version None)
Quarter: 2009Q3

REPORT INFORMATION
  Report Type: 
  Country: None (occurrence: None)
  Receive Date: 20090812
  Receipt Date: 20090812
  Transmission Date: 20100115
  Serious: Yes (Death, Hospitalization)
  Sender: FDA-Public Use
  Company Number: None

PATIENT
  Sex: Male

DRUGS (9)
  1. REVLIMID [Suspect]
     Indication: MYELODYSPLASTIC SYNDROME
     Dosage: 10MG DAILY ORALLY
     Route: 048
  2. VICODIN [Concomitant]
  3. LEVOTHROID [Concomitant]
  4. EPOGEN [Concomitant]
  5. GEMFIBROZIL [Concomitant]
  6. OMEPRAZOLE [Concomitant]
  7. METOPROLOL [Concomitant]
  8. KAYEXALATE [Concomitant]
  9. RENAGEL [Concomitant]

REACTIONS (3)
  - DISEASE PROGRESSION [None]
  - LEUKOPENIA [None]
  - THROMBOCYTOPENIA [None]
